FAERS Safety Report 9532013 (Version 1)
Quarter: 2013Q2

REPORT INFORMATION
  Report Type: Spontaneous
  Country: US (occurrence: None)
  Receive Date: 20130403
  Receipt Date: 20130403
  Transmission Date: 20140414
  Serious: Yes (Other)
  Sender: FDA-Public Use
  Company Number: US-2012-10479

PATIENT
  Age: 47 Year
  Sex: Female

DRUGS (3)
  1. BUSULFEX [Suspect]
     Indication: MYELODYSPLASTIC SYNDROME
  2. ETOPOSIDE [Suspect]
     Indication: MYELODYSPLASTIC SYNDROME
  3. SOLUMEDROL (METHYLPREDNISOLONE SODIUM SUCCINATE) [Concomitant]

REACTIONS (2)
  - Venoocclusive liver disease [None]
  - Acute graft versus host disease [None]
